FAERS Safety Report 7824399-9 (Version None)
Quarter: 2011Q4

REPORT INFORMATION
  Report Type: 
  Country: None (occurrence: None)
  Receive Date: 20111019
  Receipt Date: 20111012
  Transmission Date: 20120403
  Serious: Yes (Hospitalization)
  Sender: FDA-Public Use
  Company Number: FR-UCBSA-043368

PATIENT
  Age: 56 Year
  Sex: Female

DRUGS (3)
  1. KEPPRA [Suspect]
     Indication: EPILEPSY
     Route: 048
     Dates: start: 20110815, end: 20110911
  2. URBANYL [Suspect]
     Indication: EPILEPSY
     Dosage: DAILY DOSE: 5 MG
     Route: 048
     Dates: start: 20110815
  3. VEMURAFENIB [Suspect]
     Indication: METASTATIC MALIGNANT MELANOMA
     Dosage: DAILY DOSE: 240 MG
     Route: 048
     Dates: start: 20110829, end: 20110910

REACTIONS (3)
  - PYREXIA [None]
  - THROMBOCYTOPENIA [None]
  - RASH MACULO-PAPULAR [None]
